FAERS Safety Report 15954921 (Version 1)
Quarter: 2019Q1

REPORT INFORMATION
  Report Type: Spontaneous
  Country: CA (occurrence: CA)
  Receive Date: 20190213
  Receipt Date: 20190213
  Transmission Date: 20190417
  Serious: Yes (Other)
  Sender: FDA-Public Use
  Company Number: CA-TEVA-2019-CA-1012385

PATIENT
  Age: 56 Year
  Sex: Male

DRUGS (2)
  1. METHOTREXATE. [Suspect]
     Active Substance: METHOTREXATE
     Indication: PRODUCT USED FOR UNKNOWN INDICATION
     Route: 065
  2. ARAVA [Concomitant]
     Active Substance: LEFLUNOMIDE

REACTIONS (7)
  - Drug ineffective [Unknown]
  - Interstitial lung disease [Unknown]
  - Palmar erythema [Unknown]
  - Alanine aminotransferase increased [Unknown]
  - Emphysema [Unknown]
  - Latent tuberculosis [Unknown]
  - Bronchiectasis [Unknown]
